FAERS Safety Report 4742204-4 (Version None)
Quarter: 2005Q3

REPORT INFORMATION
  Report Type: 
  Country: None (occurrence: None)
  Receive Date: 20050811
  Receipt Date: 20050318
  Transmission Date: 20060218
  Serious: No
  Sender: FDA-Public Use
  Company Number: US-GLAXOSMITHKLINE-A0550451A

PATIENT
  Age: 51 Year
  Sex: Female

DRUGS (2)
  1. PAXIL CR [Suspect]
     Dosage: 12.5MG PER DAY
     Route: 048
     Dates: start: 20050314, end: 20050317
  2. ATENOLOL [Concomitant]

REACTIONS (3)
  - DIARRHOEA [None]
  - INSOMNIA [None]
  - NAUSEA [None]
